FAERS Safety Report 13181830 (Version 1)
Quarter: 2017Q1

REPORT INFORMATION
  Report Type: Spontaneous
  Country: US (occurrence: US)
  Receive Date: 20170202
  Receipt Date: 20170202
  Transmission Date: 20170428
  Serious: No
  Sender: FDA-Public Use
  Company Number: US-IMPAX LABORATORIES, INC-2016-IPXL-01429

PATIENT
  Age: 77 Year
  Sex: Female
  Weight: 47 kg

DRUGS (14)
  1. RYTARY [Suspect]
     Active Substance: CARBIDOPA\LEVODOPA
     Dosage: (23.75/95 MG) 1.5 CAPSULES EVERY 3 HRS
     Route: 048
     Dates: start: 201609
  2. SIMVASTATIN. [Concomitant]
     Active Substance: SIMVASTATIN
     Indication: BLOOD CHOLESTEROL
     Dosage: 40 MG, UNK
     Route: 065
  3. RYTARY [Suspect]
     Active Substance: CARBIDOPA\LEVODOPA
     Indication: PARKINSON^S DISEASE
     Dosage: (23.75/ 95 MG), 3 CAPSULES EVERY 6 HR
     Route: 048
     Dates: start: 201602
  4. RYTARY [Suspect]
     Active Substance: CARBIDOPA\LEVODOPA
     Dosage: (23.75/ 95 MG), 2 CAPSULES EVERY 6 HRS
     Route: 048
     Dates: start: 201602
  5. RYTARY [Suspect]
     Active Substance: CARBIDOPA\LEVODOPA
     Dosage: (23.75/ 95 MG) 2 CAPSULES MORNING AND NIGHT, 2.5 CAPSULE AT EVENING
     Route: 048
     Dates: start: 20160526
  6. RYTARY [Suspect]
     Active Substance: CARBIDOPA\LEVODOPA
     Dosage: (23.75/95 MG) 1.5 CAPSULES EVERY 3 HRS
     Route: 048
     Dates: start: 201610
  7. RYTARY [Suspect]
     Active Substance: CARBIDOPA\LEVODOPA
     Dosage: (23.75/ 95 MG), 2 CAPSULES EVERY 5 HOUR
     Dates: start: 20160605
  8. LISINOPRIL. [Concomitant]
     Active Substance: LISINOPRIL
     Indication: HYPERTENSION
     Dosage: 20 MG, DAILY
     Route: 048
  9. ASPIRIN 81 [Concomitant]
     Active Substance: ASPIRIN
     Indication: CARDIAC DISORDER
     Dosage: 81 MG
  10. RYTARY [Suspect]
     Active Substance: CARBIDOPA\LEVODOPA
     Dosage: (23.75/ 95 MG), 1.5 CAPSULES EVERY 3 HRS
     Dates: start: 201606
  11. LISINOPRIL. [Concomitant]
     Active Substance: LISINOPRIL
     Dosage: 10 MG, DAILY
     Route: 048
     Dates: start: 20161010
  12. SYNTHROID [Concomitant]
     Active Substance: LEVOTHYROXINE SODIUM
     Indication: THYROID HORMONES DECREASED
     Dosage: 100 ?G, UNK
     Route: 065
  13. RYTARY [Suspect]
     Active Substance: CARBIDOPA\LEVODOPA
     Dosage: (23.75/95 MG) 1.5 CAPSULES EVERY 3 HRS
     Route: 048
     Dates: start: 201608
  14. RYTARY [Suspect]
     Active Substance: CARBIDOPA\LEVODOPA
     Dosage: (23.75/95 MG) 1.5 CAPSULES EVERY 3 HRS
     Route: 048
     Dates: start: 201607

REACTIONS (9)
  - Asthenia [Not Recovered/Not Resolved]
  - Tremor [Not Recovered/Not Resolved]
  - Pruritus [Not Recovered/Not Resolved]
  - Drug intolerance [Not Recovered/Not Resolved]
  - Dry mouth [Not Recovered/Not Resolved]
  - Dizziness [Not Recovered/Not Resolved]
  - Drug effect decreased [Not Recovered/Not Resolved]
  - Syncope [Not Recovered/Not Resolved]
  - Drug administration error [Not Recovered/Not Resolved]

NARRATIVE: CASE EVENT DATE: 2016
